FAERS Safety Report 5746635-5 (Version None)
Quarter: 2008Q2

REPORT INFORMATION
  Report Type: 
  Country: None (occurrence: None)
  Receive Date: 20080522
  Receipt Date: 20080516
  Transmission Date: 20081010
  Serious: Yes (Death)
  Sender: FDA-Public Use
  Company Number: JP-JNJFOC-20080502549

PATIENT
  Sex: Male
  Weight: 64 kg

DRUGS (8)
  1. RISPERDAL [Suspect]
     Route: 048
  2. RISPERDAL [Suspect]
     Route: 048
  3. RISPERDAL [Suspect]
     Route: 048
  4. RISPERDAL [Suspect]
     Route: 048
  5. RISPERDAL [Suspect]
     Indication: SCHIZOPHRENIA
     Route: 048
  6. BROMAZEPAM [Concomitant]
  7. BROMAZEPAM [Concomitant]
  8. NITRAZEPAM [Concomitant]

REACTIONS (1)
  - PULMONARY EMBOLISM [None]
